FAERS Safety Report 8524013-3 (Version None)
Quarter: 2012Q2

REPORT INFORMATION
  Report Type: 
  Country: None (occurrence: None)
  Receive Date: 20120406
  Receipt Date: 20111115
  Transmission Date: 20120825
  Serious: Yes (Hospitalization, Other)
  Sender: FDA-Public Use
  Company Number: US-CYPR-2011-000067

PATIENT
  Sex: Female
  Weight: 76.2043 kg

DRUGS (7)
  1. CLOPIDOGREL [Suspect]
     Indication: ANTIPLATELET THERAPY
     Dosage: (75 MG QD ORAL)
     Route: 048
     Dates: start: 20101214
  2. CLOPIDOGREL [Suspect]
     Indication: ANTIPLATELET THERAPY
     Dosage: (75 MG QD)
     Dates: start: 20111115
  3. ZOCOR [Concomitant]
  4. BYSTOLIC [Concomitant]
  5. CYPHER STENT [Concomitant]
  6. METFORMIN HYDROCHLORIDE [Concomitant]
  7. ASPIRIN [Suspect]
     Indication: ANTIPLATELET THERAPY
     Dosage: (325 MG QD ORAL)
     Route: 048
     Dates: start: 20091217

REACTIONS (1)
  - CORONARY ARTERY DISEASE [None]
